FAERS Safety Report 7969209-4 (Version None)
Quarter: 2011Q4

REPORT INFORMATION
  Report Type: 
  Country: None (occurrence: None)
  Receive Date: 20111209
  Receipt Date: 20111202
  Transmission Date: 20120403
  Serious: Yes (Other)
  Sender: FDA-Public Use
  Company Number: DE-B.I. PHARMACEUTICALS,INC./RIDGEFIELD-2011-DE-06659DE

PATIENT
  Sex: Female
  Weight: 52 kg

DRUGS (8)
  1. PRADAXA [Suspect]
     Dosage: 220 MG
     Dates: start: 20111018, end: 20111116
  2. BISOPROLOL SANDOZ [Concomitant]
     Dosage: 1 ANZ
  3. AMIODARON SANDOZ [Concomitant]
     Dosage: 1 ANZ
  4. FUROSEMID 40 HEUMANN [Concomitant]
     Dosage: 1 ANZ
  5. PANTOPRAZOL ACIS [Concomitant]
     Dosage: 40 MG
  6. SPIRONOLACTON SANDOZ [Concomitant]
     Dosage: 0.5 ANZ
  7. ALLOPURINOL 300 HEUMANN [Concomitant]
     Dosage: 0.5 ANZ
  8. MCP AL [Concomitant]
     Dosage: IF REQUIRED

REACTIONS (1)
  - BLOOD CREATININE INCREASED [None]
